FAERS Safety Report 11752759 (Version 1)
Quarter: 2015Q4

REPORT INFORMATION
  Report Type: Not Available
  Country: DE (occurrence: CH)
  Receive Date: 20151119
  Receipt Date: 20151119
  Transmission Date: 20160304
  Serious: Yes (Hospitalization)
  Sender: FDA-Public Use
  Company Number: DE-ANIPHARMA-2015-CH-000001

PATIENT
  Age: 25 Year
  Sex: Male

DRUGS (3)
  1. FLUVOXAMINE (NON-SPECIFIC) [Suspect]
     Active Substance: FLUVOXAMINE
     Dosage: 100MG
     Route: 065
  2. CLOZAPINE. [Suspect]
     Active Substance: CLOZAPINE
     Dosage: 50MG
     Route: 048
  3. FLUPENTIXOL [Suspect]
     Active Substance: FLUPENTIXOL
     Route: 065

REACTIONS (4)
  - Pulmonary embolism [Unknown]
  - Pneumonia [Unknown]
  - Pulmonary infarction [Unknown]
  - Weight increased [Unknown]

NARRATIVE: CASE EVENT DATE: 20141212
